FAERS Safety Report 10419127 (Version 1)
Quarter: 2014Q2

REPORT INFORMATION
  Report Type: Spontaneous
  Country: US (occurrence: None)
  Receive Date: 20140617
  Receipt Date: 20140617
  Transmission Date: 20141212
  Serious: Yes (Other)
  Sender: FDA-Public Use
  Company Number: 1237781

PATIENT
  Age: 73 Year
  Sex: Female
  Weight: 55.34 kg

DRUGS (6)
  1. ACTERMA 5% TWO INFUSION DOSES [Suspect]
     Indication: RHEUMATOID ARTHRITIS
     Route: 042
     Dates: start: 20130429, end: 20130605
  2. PRAVASTATIN (PRAVASTATIN SODIUM) [Concomitant]
  3. HCTZ (HYDROCHLOROTHIAZIDE) [Concomitant]
  4. PREDNSONE [Concomitant]
  5. LISINOPRIL [Concomitant]
  6. ASPIRIN [Concomitant]

REACTIONS (1)
  - Anaphylactic reaction [None]
